FAERS Safety Report 4779036-7 (Version None)
Quarter: 2005Q3

REPORT INFORMATION
  Report Type: 
  Country: None (occurrence: None)
  Receive Date: 20050923
  Receipt Date: 20050912
  Transmission Date: 20060218
  Serious: Yes (Life-Threatening)
  Sender: FDA-Public Use
  Company Number: 216131

PATIENT
  Age: 70 Year
  Sex: Male
  Weight: 70 kg

DRUGS (3)
  1. RITUXAN [Suspect]
     Indication: NON-HODGKIN'S LYMPHOMA
     Dosage: 650 MG, INTRAVENOUS
     Route: 042
     Dates: start: 20050428
  2. RESTAMIN (CHLORPHENIRAMINE MALEATE) [Concomitant]
  3. PYRINAZIN (JAPAN) (ACETAMINOPHEN) [Concomitant]

REACTIONS (6)
  - ANGINA UNSTABLE [None]
  - CORONARY ARTERY STENOSIS [None]
  - FEELING ABNORMAL [None]
  - PLATELET COUNT INCREASED [None]
  - STOMACH DISCOMFORT [None]
  - WHITE BLOOD CELL COUNT DECREASED [None]
